FAERS Safety Report 11182052 (Version 1)
Quarter: 2015Q2

REPORT INFORMATION
  Report Type: Spontaneous
  Country: US (occurrence: US)
  Receive Date: 20150611
  Receipt Date: 20150611
  Transmission Date: 20150821
  Serious: No
  Sender: FDA-Public Use
  Company Number: US-ASTELLAS-2015US014877

PATIENT
  Sex: Male

DRUGS (1)
  1. XTANDI [Suspect]
     Active Substance: ENZALUTAMIDE
     Indication: PRODUCT USED FOR UNKNOWN INDICATION
     Route: 065
     Dates: start: 20150311

REACTIONS (11)
  - Insomnia [Unknown]
  - Decreased appetite [Unknown]
  - Fatigue [Unknown]
  - Dizziness [Unknown]
  - Feeling jittery [Unknown]
  - Asthenia [Unknown]
  - Feeling abnormal [Unknown]
  - Dry throat [Unknown]
  - Hyperhidrosis [Unknown]
  - Dry mouth [Unknown]
  - Flushing [Unknown]
